FAERS Safety Report 6591071-5 (Version None)
Quarter: 2010Q1

REPORT INFORMATION
  Report Type: 
  Country: None (occurrence: None)
  Receive Date: 20100205
  Receipt Date: 20100121
  Transmission Date: 20100710
  Serious: Yes (Hospitalization)
  Sender: FDA-Public Use
  Company Number: 2009US000028

PATIENT
  Age: 86 Year
  Sex: Male

DRUGS (28)
  1. ENTEREG [Suspect]
     Indication: POSTOPERATIVE ILEUS
     Dosage: 12 MG; PO
     Route: 048
     Dates: start: 20090630, end: 20090704
  2. HYTRIN [Concomitant]
  3. LOPRESSOR [Concomitant]
  4. RESTORIL [Concomitant]
  5. NORVASC [Concomitant]
  6. CRESTOR [Concomitant]
  7. MORPHINE [Concomitant]
  8. ZOFRAN [Concomitant]
  9. LABETALOL HCL [Concomitant]
  10. LOVENOX [Concomitant]
  11. HEPARIN [Concomitant]
  12. METOPROLOL TARTRATE [Concomitant]
  13. PERCOCET [Concomitant]
  14. AMBIEN [Concomitant]
  15. PHENERGAN HCL [Concomitant]
  16. CARDIAZEM [Concomitant]
  17. VASOTEC [Concomitant]
  18. DULCOLAX [Concomitant]
  19. CATAPRES [Concomitant]
  20. LEVAQUIN [Concomitant]
  21. VERSED [Concomitant]
  22. FLAGYL [Concomitant]
  23. PROPOFOL [Concomitant]
  24. VANCOMYCIN [Concomitant]
  25. NITROGLYCERIN [Concomitant]
  26. MEGACE [Concomitant]
  27. XOPENEX [Concomitant]
  28. REGLAN [Concomitant]

REACTIONS (8)
  - BACTERAEMIA [None]
  - GASTROINTESTINAL DISORDER POSTOPERATIVE [None]
  - INTESTINAL ISCHAEMIA [None]
  - MYOCARDIAL INFARCTION [None]
  - PNEUMONIA [None]
  - RENAL FAILURE ACUTE [None]
  - RESPIRATORY FAILURE [None]
  - SEPTIC SHOCK [None]
